FAERS Safety Report 6556110-6 (Version None)
Quarter: 2010Q1

REPORT INFORMATION
  Report Type: 
  Country: None (occurrence: None)
  Receive Date: 20100128
  Receipt Date: 20090414
  Transmission Date: 20100710
  Serious: Yes (Hospitalization, Other)
  Sender: FDA-Public Use
  Company Number: US-TEVA-191387USA

PATIENT
  Sex: Female

DRUGS (1)
  1. COPAXONE [Suspect]
     Indication: MULTIPLE SCLEROSIS
     Route: 058

REACTIONS (5)
  - DECREASED APPETITE [None]
  - DIARRHOEA [None]
  - GASTROINTESTINAL DISORDER [None]
  - MULTIPLE SCLEROSIS RELAPSE [None]
  - VOMITING [None]
